FAERS Safety Report 18624970 (Version 2)
Quarter: 2021Q1

REPORT INFORMATION
  Report Type: Spontaneous
  Country: CA (occurrence: CA)
  Receive Date: 20201216
  Receipt Date: 20210305
  Transmission Date: 20210419
  Serious: Yes (Other)
  Sender: FDA-Public Use
  Company Number: CA-CELLTRION INC.-2019CA026999

PATIENT

DRUGS (10)
  1. INFLECTRA [Suspect]
     Active Substance: INFLIXIMAB-DYYB
     Dosage: 5 MG/KG, AT 0, 2, 6, THEN EVERY 8 WEEKS
     Route: 042
     Dates: start: 20200214
  2. INFLECTRA [Suspect]
     Active Substance: INFLIXIMAB-DYYB
     Indication: CROHN^S DISEASE
     Dosage: 5 MG/KG, AT 0, 2, 6, THEN EVERY 8 WEEKS
     Route: 042
     Dates: start: 20191030, end: 20200214
  3. INFLECTRA [Suspect]
     Active Substance: INFLIXIMAB-DYYB
     Dosage: 5 MG/KG, AT 0, 2, 6, THEN EVERY 8 WEEKS
     Route: 042
     Dates: start: 20191114
  4. INFLECTRA [Suspect]
     Active Substance: INFLIXIMAB-DYYB
     Dosage: 5 MG/KG EVERY 4 WEEKS
     Route: 042
     Dates: start: 20200512
  5. INFLECTRA [Suspect]
     Active Substance: INFLIXIMAB-DYYB
     Dosage: 5 MG/KG EVERY 4 WEEKS
     Route: 042
     Dates: start: 20200707
  6. VITAMIN B12 [VITAMIN B12 NOS] [Concomitant]
     Active Substance: CYANOCOBALAMIN
     Dosage: UNK (INJECTION)
     Dates: end: 2020
  7. ENTOCORT [Concomitant]
     Active Substance: BUDESONIDE
     Dosage: 3 MG, DAILY
     Route: 048
     Dates: start: 201906
  8. INFLECTRA [Suspect]
     Active Substance: INFLIXIMAB-DYYB
     Dosage: 5 MG/KG, EVERY 6 WEEKS FOR 12 MONTHS
     Route: 042
     Dates: start: 20200414, end: 20200414
  9. INFLECTRA [Suspect]
     Active Substance: INFLIXIMAB-DYYB
     Dosage: 5 MG/KG EVERY 4 WEEKS
     Route: 042
     Dates: start: 20200610
  10. INFLECTRA [Suspect]
     Active Substance: INFLIXIMAB-DYYB
     Dosage: 5 MG/KG, EVERY 6 WEEKS FOR 12 MONTHS
     Route: 042
     Dates: start: 20200414, end: 20200414

REACTIONS (16)
  - Off label use [Unknown]
  - Gastrointestinal sounds abnormal [Unknown]
  - Abdominal distension [Unknown]
  - Intestinal obstruction [Unknown]
  - Drug level below therapeutic [Not Recovered/Not Resolved]
  - Serum ferritin decreased [Unknown]
  - Fatigue [Not Recovered/Not Resolved]
  - Abdominal tenderness [Unknown]
  - Off label use [Unknown]
  - Intentional product use issue [Unknown]
  - Epigastric discomfort [Unknown]
  - Nausea [Unknown]
  - Influenza [Unknown]
  - Condition aggravated [Unknown]
  - Haemoglobin decreased [Not Recovered/Not Resolved]
  - Headache [Unknown]

NARRATIVE: CASE EVENT DATE: 20191114
